FAERS Safety Report 25750239 (Version 1)
Quarter: 2025Q3

REPORT INFORMATION
  Report Type: Spontaneous
  Country: GB (occurrence: GB)
  Receive Date: 20250902
  Receipt Date: 20250902
  Transmission Date: 20251021
  Serious: Yes (Disabling, Other)
  Sender: BAYER HEALTHCARE PHARMACEUTICALS INC.
  Company Number: None

PATIENT
  Age: 44 Year
  Sex: Female

DRUGS (1)
  1. CIPROFLOXACIN [Suspect]
     Active Substance: CIPROFLOXACIN
     Indication: Renal pain
     Dates: start: 20250501, end: 20250514

REACTIONS (5)
  - Ligament injury [Recovering/Resolving]
  - Meniscus injury [Recovering/Resolving]
  - Pain in extremity [None]
  - Dysstasia [None]
  - Product use in unapproved indication [None]

NARRATIVE: CASE EVENT DATE: 20250601
